FAERS Safety Report 24444526 (Version 13)
Quarter: 2025Q1

REPORT INFORMATION
  Report Type: Report from Study
  Country: RU (occurrence: RU)
  Receive Date: 20241016
  Receipt Date: 20250219
  Transmission Date: 20250409
  Serious: Yes (Other)
  Sender: NOVARTIS
  Company Number: RU-002147023-NVSC2024RU199569

PATIENT
  Age: 0 Year
  Sex: Female
  Weight: 4.7 kg

DRUGS (3)
  1. ZOLGENSMA [Suspect]
     Active Substance: ONASEMNOGENE ABEPARVOVEC-XIOI
     Indication: Spinal muscular atrophy
     Route: 041
     Dates: start: 20240823, end: 20240823
  2. PREDNISOLONE [Concomitant]
     Active Substance: PREDNISOLONE
     Indication: Product used for unknown indication
     Dosage: 5 MG, QD
     Route: 065
     Dates: start: 20240823
  3. OMEPRAZOLE [Concomitant]
     Active Substance: OMEPRAZOLE
     Indication: Product used for unknown indication
     Dosage: 10 MG, QD
     Route: 065
     Dates: start: 20240823

REACTIONS (19)
  - Full blood count abnormal [Recovering/Resolving]
  - Haemoglobin abnormal [Recovering/Resolving]
  - Platelet-large cell ratio increased [Recovering/Resolving]
  - Platelet count abnormal [Recovering/Resolving]
  - Mean platelet volume abnormal [Recovering/Resolving]
  - Procalcitonin abnormal [Recovering/Resolving]
  - White blood cell count abnormal [Recovering/Resolving]
  - Neutrophil count abnormal [Recovering/Resolving]
  - Lymphocyte count abnormal [Recovering/Resolving]
  - Monocyte count abnormal [Recovering/Resolving]
  - Eosinophil count increased [Recovering/Resolving]
  - Red blood cell count decreased [Unknown]
  - Mean cell volume increased [Unknown]
  - Mean cell haemoglobin increased [Unknown]
  - Mean cell haemoglobin concentration increased [Unknown]
  - Aspartate aminotransferase increased [Unknown]
  - Troponin I increased [Unknown]
  - Red blood cell sedimentation rate increased [Unknown]
  - Alanine aminotransferase increased [Unknown]

NARRATIVE: CASE EVENT DATE: 20240826
